FAERS Safety Report 18113235 (Version 1)
Quarter: 2020Q3

REPORT INFORMATION
  Report Type: Spontaneous
  Country: US (occurrence: US)
  Receive Date: 20200805
  Receipt Date: 20200805
  Transmission Date: 20201103
  Serious: Yes (Other)
  Sender: FDA-Public Use
  Company Number: US-ALEXION-A202011061

PATIENT
  Age: 19 Year
  Sex: Female

DRUGS (1)
  1. SOLIRIS [Suspect]
     Active Substance: ECULIZUMAB
     Indication: MYASTHENIA GRAVIS
     Dosage: 1200 MG, Q2W
     Route: 065

REACTIONS (3)
  - Myasthenia gravis [Not Recovered/Not Resolved]
  - Product dose omission issue [Recovered/Resolved]
  - Ill-defined disorder [Not Recovered/Not Resolved]
